FAERS Safety Report 9698328 (Version 3)
Quarter: 2014Q3

REPORT INFORMATION
  Report Type: Spontaneous
  Country: US (occurrence: US)
  Receive Date: 20131120
  Receipt Date: 20140801
  Transmission Date: 20150326
  Serious: Yes (Life-Threatening, Hospitalization)
  Sender: FDA-Public Use
  Company Number: US-BAYER-2013-139664

PATIENT
  Age: 26 Year
  Sex: Female

DRUGS (1)
  1. MIRENA [Suspect]
     Active Substance: LEVONORGESTREL
     Dosage: 20 MCG/24HR, CONT
     Route: 015
     Dates: start: 20120427, end: 201303

REACTIONS (10)
  - Anxiety [None]
  - Abdominal pain lower [None]
  - General physical health deterioration [None]
  - Anhedonia [None]
  - Hormone level abnormal [None]
  - Emotional distress [None]
  - Amenorrhoea [None]
  - Device expulsion [None]
  - Injury [None]
  - Alopecia [None]

NARRATIVE: CASE EVENT DATE: 201305
